FAERS Safety Report 5834680-0 (Version None)
Quarter: 2008Q3

REPORT INFORMATION
  Report Type: 
  Country: None (occurrence: None)
  Receive Date: 20080805
  Receipt Date: 20080731
  Transmission Date: 20090109
  Serious: Yes (Hospitalization)
  Sender: FDA-Public Use
  Company Number: DE-MERCK-0807DEU00068

PATIENT
  Age: 42 Year
  Sex: Female
  Weight: 93 kg

DRUGS (7)
  1. EMEND [Suspect]
     Indication: PROPHYLAXIS OF NAUSEA AND VOMITING
     Route: 048
     Dates: start: 20080421, end: 20080421
  2. EMEND [Suspect]
     Route: 048
     Dates: start: 20080422, end: 20080425
  3. DEXAMETHASONE [Concomitant]
     Route: 065
  4. GRANISETRON HYDROCHLORIDE [Concomitant]
     Route: 065
  5. CISPLATIN [Concomitant]
     Indication: OVARIAN GRANULOSA-THECA CELL TUMOUR
     Route: 065
     Dates: start: 20080421, end: 20080425
  6. ETOPOSIDE [Concomitant]
     Indication: OVARIAN GRANULOSA-THECA CELL TUMOUR
     Route: 065
     Dates: start: 20080421, end: 20080425
  7. BLEOMYCIN [Concomitant]
     Indication: OVARIAN GRANULOSA-THECA CELL TUMOUR
     Route: 065
     Dates: start: 20080421, end: 20080425

REACTIONS (11)
  - ABDOMINAL PAIN [None]
  - ANOREXIA [None]
  - CONFUSIONAL STATE [None]
  - DIZZINESS [None]
  - HYPOAESTHESIA [None]
  - NAUSEA [None]
  - OVERDOSE [None]
  - PALPITATIONS [None]
  - SLEEP DISORDER [None]
  - THIRST DECREASED [None]
  - TREMOR [None]
